FAERS Safety Report 18592121 (Version 2)
Quarter: 2021Q3

REPORT INFORMATION
  Report Type: Spontaneous
  Country: US (occurrence: US)
  Receive Date: 20201208
  Receipt Date: 20210823
  Transmission Date: 20211014
  Serious: No
  Sender: FDA-Public Use
  Company Number: US-THERATECHNOLOGIES INC.-2020-THE-TES-000269

PATIENT
  Age: 58 Year
  Sex: Male

DRUGS (5)
  1. EGRIFTA SV [Suspect]
     Active Substance: TESAMORELIN ACETATE
     Dosage: 1.4 MG, QD
     Route: 058
  2. EGRIFTA SV [Suspect]
     Active Substance: TESAMORELIN ACETATE
     Indication: LIPODYSTROPHY ACQUIRED
     Dosage: 1.4 MG, QD
     Route: 058
     Dates: start: 202008
  3. WELLBUTRIN [Concomitant]
     Active Substance: BUPROPION HYDROCHLORIDE
  4. VENOFER [Concomitant]
     Active Substance: IRON SUCROSE
  5. ALLOPURINOL. [Concomitant]
     Active Substance: ALLOPURINOL

REACTIONS (2)
  - Product substitution issue [Not Recovered/Not Resolved]
  - Therapeutic product effect decreased [Unknown]

NARRATIVE: CASE EVENT DATE: 202008
